FAERS Safety Report 10257587 (Version 1)
Quarter: 2014Q2

REPORT INFORMATION
  Report Type: Spontaneous
  Country: SE (occurrence: SE)
  Receive Date: 20140625
  Receipt Date: 20140625
  Transmission Date: 20141212
  Serious: Yes (Hospitalization)
  Sender: FDA-Public Use
  Company Number: SE-NAPPMUNDI-GBR-2014-0018754

PATIENT
  Sex: 0

DRUGS (10)
  1. OXYCONTIN 10 MG DEPOTTABLETT [Suspect]
     Indication: PAIN
     Route: 048
     Dates: start: 20130226, end: 20130228
  2. OXYNORM 5 MG KAPSEL, HARD [Suspect]
     Indication: PAIN
     Route: 048
     Dates: start: 20130226, end: 20130228
  3. STILNOCT [Suspect]
     Indication: PRODUCT USED FOR UNKNOWN INDICATION
     Route: 048
     Dates: start: 20130226, end: 20130228
  4. METFORMIN [Concomitant]
  5. REMICADE [Concomitant]
  6. CALCICHEW-D3 [Concomitant]
  7. OMEPRAZOLE [Concomitant]
  8. PANODIL [Concomitant]
  9. PRIMPERAN [Concomitant]
  10. SAROTEN [Concomitant]

REACTIONS (6)
  - Incorrect dose administered [Recovered/Resolved]
  - Elevated mood [Recovered/Resolved]
  - Tic [Recovered/Resolved]
  - Abnormal behaviour [None]
  - Pruritus [None]
  - Stress [None]
